FAERS Safety Report 6196003-X (Version None)
Quarter: 2009Q2

REPORT INFORMATION
  Report Type: 
  Country: None (occurrence: None)
  Receive Date: 20090520
  Receipt Date: 20060102
  Transmission Date: 20091009
  Serious: Yes (Hospitalization)
  Sender: FDA-Public Use
  Company Number: NL-ROCHE-436551

PATIENT
  Sex: Male

DRUGS (6)
  1. CAPECITABINE [Suspect]
     Dosage: DAYS 1-14 EVERY 3 WEEKS
     Route: 048
  2. OXALIPLATIN [Suspect]
     Route: 042
  3. METFORMIN HCL [Concomitant]
     Dosage: FREQUENCY : DAILY
  4. AMARYL [Concomitant]
     Dosage: FREQUENCY : DAILY
  5. NAPROXEN [Concomitant]
  6. COLCHICINE [Concomitant]

REACTIONS (2)
  - CHONDROCALCINOSIS PYROPHOSPHATE [None]
  - DIABETES MELLITUS INADEQUATE CONTROL [None]
